FAERS Safety Report 5807790-1 (Version None)
Quarter: 2008Q3

REPORT INFORMATION
  Report Type: 
  Country: None (occurrence: None)
  Receive Date: 20080711
  Receipt Date: 20080702
  Transmission Date: 20090109
  Serious: Yes (Other)
  Sender: FDA-Public Use
  Company Number: CN-ROCHE-571565

PATIENT
  Sex: Male
  Weight: 49 kg

DRUGS (4)
  1. XELODA [Suspect]
     Indication: GASTRIC CANCER
     Route: 048
     Dates: start: 20050906, end: 20051018
  2. XELODA [Suspect]
     Route: 048
     Dates: start: 20051201, end: 20060301
  3. OXALIPLATIN [Concomitant]
     Indication: GASTRIC CANCER
     Dosage: ROUTE: IVGTT
     Route: 042
     Dates: start: 20050906, end: 20051010
  4. OXALIPLATIN [Concomitant]
     Route: 042
     Dates: start: 20051201, end: 20060301

REACTIONS (5)
  - BLOOD CREATININE INCREASED [None]
  - HAEMATURIA [None]
  - HYDRONEPHROSIS [None]
  - NEPHROLITHIASIS [None]
  - URETERIC DILATATION [None]
